APPROVED DRUG PRODUCT: EXTENDED PHENYTOIN SODIUM
Active Ingredient: PHENYTOIN SODIUM
Strength: 200MG EXTENDED
Dosage Form/Route: CAPSULE;ORAL
Application: A040731 | Product #001
Applicant: SUN PHARMACEUTICAL INDUSTRIES LTD
Approved: Jun 30, 2008 | RLD: No | RS: No | Type: DISCN